FAERS Safety Report 23677701 (Version 1)
Quarter: 2024Q1

REPORT INFORMATION
  Report Type: Spontaneous
  Country: US (occurrence: None)
  Receive Date: 20240327
  Receipt Date: 20240327
  Transmission Date: 20240409
  Serious: Yes (Other)
  Sender: FDA-Public Use
  Company Number: US-FARMAPROD-202403-0957

PATIENT
  Sex: Male

DRUGS (22)
  1. OXERVATE [Suspect]
     Active Substance: CENEGERMIN-BKBJ
     Indication: Neurotrophic keratopathy
     Route: 047
     Dates: start: 20240131
  2. COENZYME Q-10 [Concomitant]
  3. IRON [Concomitant]
     Active Substance: IRON
     Dosage: 159(45)MG
  4. VITAMIN C [Concomitant]
     Active Substance: ASCORBIC ACID
  5. VITAMINS [Concomitant]
     Active Substance: VITAMINS
  6. BYETTA [Concomitant]
     Active Substance: EXENATIDE
     Dosage: 5MCG/0.02 PEN INJECTOR
  7. VITAMIN D2 [Concomitant]
     Active Substance: ERGOCALCIFEROL
  8. MAGNESIUM [Concomitant]
     Active Substance: MAGNESIUM
  9. B COMPLEX TABLET [Concomitant]
  10. REFRESH CLASSIC [Concomitant]
     Active Substance: POLYVINYL ALCOHOL\POVIDONE
  11. PREDNISOLONE-BROMFENAC [Concomitant]
  12. DEXILANT [Concomitant]
     Active Substance: DEXLANSOPRAZOLE
     Dosage: BIPHASIC RELEASE
  13. VENCLEXTA [Concomitant]
     Active Substance: VENETOCLAX
  14. GUANFACINE HYDROCHLORIDE [Concomitant]
     Active Substance: GUANFACINE HYDROCHLORIDE
  15. FARXIGA [Concomitant]
     Active Substance: DAPAGLIFLOZIN PROPANEDIOL
  16. SYNTHROID [Concomitant]
     Active Substance: LEVOTHYROXINE SODIUM
  17. ELIQUIS [Concomitant]
     Active Substance: APIXABAN
  18. CARVEDILOL [Concomitant]
     Active Substance: CARVEDILOL
  19. LIPITOR [Concomitant]
     Active Substance: ATORVASTATIN CALCIUM
  20. NAMZARIC [Concomitant]
     Active Substance: DONEPEZIL HYDROCHLORIDE\MEMANTINE HYDROCHLORIDE
     Dosage: 28 MG-10MG , SPRINKLE 24H
  21. GABAPENTIN [Concomitant]
     Active Substance: GABAPENTIN
  22. LUMIGAN [Concomitant]
     Active Substance: BIMATOPROST

REACTIONS (2)
  - Renal haemorrhage [Unknown]
  - Cataract operation [Unknown]
